FAERS Safety Report 5610753-2 (Version None)
Quarter: 2008Q1

REPORT INFORMATION
  Report Type: 
  Country: None (occurrence: None)
  Receive Date: 20080201
  Receipt Date: 20080124
  Transmission Date: 20080703
  Serious: Yes (Hospitalization, Other)
  Sender: FDA-Public Use
  Company Number: US-AVENTIS-200810535US

PATIENT
  Age: 33 Year
  Sex: Female

DRUGS (3)
  1. CLOMID [Suspect]
     Indication: OVULATION INDUCTION
  2. CLOMID [Suspect]
  3. CLOMID [Suspect]

REACTIONS (9)
  - ABDOMINAL DISCOMFORT [None]
  - ACUTE MYOCARDIAL INFARCTION [None]
  - BREAST TENDERNESS [None]
  - CHEST PAIN [None]
  - DYSPNOEA [None]
  - HOT FLUSH [None]
  - HYPERHIDROSIS [None]
  - NAUSEA [None]
  - PALPITATIONS [None]
